FAERS Safety Report 17454796 (Version 1)
Quarter: 2020Q1

REPORT INFORMATION
  Report Type: Spontaneous
  Country: US (occurrence: US)
  Receive Date: 20200211
  Receipt Date: 20200211
  Transmission Date: 20200409
  Serious: No
  Sender: FDA-Public Use
  Company Number: None

PATIENT
  Age: 50 Year
  Sex: Female

DRUGS (1)
  1. REMICADE [Suspect]
     Active Substance: INFLIXIMAB
     Indication: PSORIATIC ARTHROPATHY
     Dosage: ?          OTHER FREQUENCY:OTHER;?
     Route: 042
     Dates: start: 20160826

REACTIONS (3)
  - Psoriasis [None]
  - Insurance issue [None]
  - Therapy cessation [None]

NARRATIVE: CASE EVENT DATE: 20200113
